FAERS Safety Report 23127000 (Version 1)
Quarter: 2023Q4

REPORT INFORMATION
  Report Type: Spontaneous
  Country: DE (occurrence: DE)
  Receive Date: 20231030
  Receipt Date: 20231030
  Transmission Date: 20240109
  Serious: Yes (Life-Threatening, Hospitalization)
  Sender: FDA-Public Use
  Company Number: DE-BoehringerIngelheim-2023-BI-269722

PATIENT
  Age: 73 Year
  Sex: Male

DRUGS (1)
  1. JARDIANCE [Suspect]
     Active Substance: EMPAGLIFLOZIN
     Indication: Cardiac failure
     Route: 048
     Dates: start: 20230408, end: 20230620

REACTIONS (4)
  - Urosepsis [Recovered/Resolved]
  - Loss of consciousness [Unknown]
  - Klebsiella urinary tract infection [Unknown]
  - Glycosuria [Unknown]

NARRATIVE: CASE EVENT DATE: 20230620
